FAERS Safety Report 6427922-4 (Version None)
Quarter: 2009Q4

REPORT INFORMATION
  Report Type: 
  Country: None (occurrence: None)
  Receive Date: 20091105
  Receipt Date: 20091026
  Transmission Date: 20100525
  Serious: Yes (Hospitalization, Disabling, Other)
  Sender: FDA-Public Use
  Company Number: US-ROCHE-603710

PATIENT
  Sex: Male
  Weight: 68.9 kg

DRUGS (10)
  1. PEG-INTERFERON A-2A (RO 25-8310) [Suspect]
     Indication: HEPATITIS C
     Dosage: FORM: PRE-FILLED SYRINGE, WEEK 51 OF TREATMENT
     Route: 065
     Dates: start: 20081106
  2. RIBAVIRIN [Suspect]
     Indication: HEPATITIS C
     Dosage: DIVIDED DOSES, 2 DOSEFORM (400 MG) IN AM, 3 DOSEFORM (600 MG) IN PM, WEEK 51 OF TREATMENT
     Route: 048
     Dates: start: 20081106
  3. PROCRIT [Concomitant]
     Route: 058
     Dates: start: 20081204, end: 20090624
  4. PROCRIT [Concomitant]
     Route: 058
     Dates: start: 20090630, end: 20090818
  5. ZOLOFT [Concomitant]
     Indication: DEPRESSION
     Dosage: EVERY DAY
     Route: 048
  6. MORPHINE SULFATE [Concomitant]
     Route: 048
  7. OXYCODONE [Concomitant]
     Route: 048
  8. TRAZODONE HCL [Concomitant]
     Indication: INSOMNIA
     Dosage: DOSAGE REPORTED : QHS (AT BEDTIME)
     Route: 048
  9. PREVACID [Concomitant]
     Dosage: OTHER INDICATION: NAUSEA
  10. COMBIGAN [Concomitant]

REACTIONS (14)
  - ABDOMINAL DISCOMFORT [None]
  - ACARODERMATITIS [None]
  - ANAEMIA [None]
  - BLOOD DISORDER [None]
  - CHOLECYSTECTOMY [None]
  - DECREASED APPETITE [None]
  - DYSGEUSIA [None]
  - DYSPNOEA [None]
  - FATIGUE [None]
  - PAIN [None]
  - PRURITUS [None]
  - TOOTH DISORDER [None]
  - VOMITING [None]
  - WEIGHT DECREASED [None]
